FAERS Safety Report 8199197-X (Version None)
Quarter: 2012Q1

REPORT INFORMATION
  Report Type: 
  Country: None (occurrence: None)
  Receive Date: 20120309
  Receipt Date: 20120229
  Transmission Date: 20120608
  Serious: Yes (Hospitalization, Other)
  Sender: FDA-Public Use
  Company Number: BE-PERRIGO-12BE001864

PATIENT
  Age: 51 Year
  Sex: Male
  Weight: 78 kg

DRUGS (5)
  1. TIGECYCLINE [Concomitant]
     Indication: SOFT TISSUE INFECTION
     Dosage: 100 MG LOADING
     Route: 065
  2. COLISTIMETHATE SODIUM RX 150 MG/VIAL 7N5 [Suspect]
     Indication: SOFT TISSUE INFECTION
     Dosage: 3 MILLION UNITS Q 8 HR
     Route: 065
  3. VANCOMYCIN [Concomitant]
     Indication: SOFT TISSUE INFECTION
     Dosage: UNKNOWN
     Route: 042
  4. MEROPENEM [Suspect]
     Indication: SOFT TISSUE INFECTION
     Dosage: 1 G Q 8 HR
     Route: 042
  5. TIGECYCLINE [Concomitant]
     Dosage: 50 MG, Q12 HR
     Route: 065

REACTIONS (5)
  - DRUG INTERACTION [None]
  - CONVULSION [None]
  - RESPIRATORY MUSCLE WEAKNESS [None]
  - APNOEA [None]
  - NEUROTOXICITY [None]
